FAERS Safety Report 4805333-2 (Version None)
Quarter: 2005Q4

REPORT INFORMATION
  Report Type: 
  Country: None (occurrence: None)
  Receive Date: 20051018
  Receipt Date: 20051013
  Transmission Date: 20060501
  Serious: Yes (Other)
  Sender: FDA-Public Use
  Company Number: 200513426GDS

PATIENT
  Age: 17 Year
  Sex: Female

DRUGS (7)
  1. CIPROFLOXACIN [Suspect]
     Indication: URINARY TRACT INFECTION
     Dosage: 1000 MG, TOTAL DAILY, ORAL
     Route: 048
     Dates: start: 20050808, end: 20050810
  2. TIZANIDINE HCL [Suspect]
     Indication: MUSCLE SPASMS
     Dosage: 6 MG, TOTAL DAILY, ORAL
     Route: 048
     Dates: start: 20050801, end: 20050811
  3. INDERAL [Suspect]
     Indication: INTRACRANIAL INJURY
     Dosage: 30 MG, TOTAL DAILY, ORAL
     Route: 048
  4. MORPHINE [Concomitant]
  5. IBUPROFEN [Concomitant]
  6. LACTITOL [Concomitant]
  7. NADROPARIN CALCIUM [Concomitant]

REACTIONS (7)
  - DRUG ADMINISTRATION ERROR [None]
  - DRUG INTERACTION POTENTIATION [None]
  - GENERAL PHYSICAL HEALTH DETERIORATION [None]
  - HYPOTENSION [None]
  - OVERDOSE [None]
  - URINARY TRACT INFECTION [None]
  - WRONG TECHNIQUE IN DRUG USAGE PROCESS [None]
